FAERS Safety Report 6282719-3 (Version None)
Quarter: 2009Q3

REPORT INFORMATION
  Report Type: 
  Country: None (occurrence: None)
  Receive Date: 20090724
  Receipt Date: 20090715
  Transmission Date: 20100115
  Serious: Yes (Hospitalization, Other)
  Sender: FDA-Public Use
  Company Number: DE-ELI_LILLY_AND_COMPANY-DE200907003266

PATIENT
  Age: 29 Year
  Sex: Female

DRUGS (2)
  1. ZYPREXA [Suspect]
     Indication: PSYCHOTIC DISORDER
     Dosage: 10 MG, UNK
     Route: 048
     Dates: start: 20070101, end: 20090712
  2. ZYPREXA [Suspect]
     Dosage: UNK, UNKNOWN
     Route: 065
     Dates: start: 20090701

REACTIONS (2)
  - BRAIN STEM STROKE [None]
  - HEMIPARESIS [None]
